FAERS Safety Report 21035051 (Version 1)
Quarter: 2022Q3

REPORT INFORMATION
  Report Type: Spontaneous
  Country: US (occurrence: None)
  Receive Date: 20220701
  Receipt Date: 20220701
  Transmission Date: 20221027
  Serious: No
  Sender: FDA-Public Use
  Company Number: None

PATIENT
  Age: 67 Year
  Sex: Male
  Weight: 102.51 kg

DRUGS (27)
  1. LENALIDOMIDE [Suspect]
     Active Substance: LENALIDOMIDE
     Indication: Plasma cell myeloma
     Dosage: OTHER FREQUENCY : 21D ON7D OFF;?
     Route: 048
  2. ACYCLOVIR [Concomitant]
     Active Substance: ACYCLOVIR
  3. ALLOPURINOL [Concomitant]
     Active Substance: ALLOPURINOL
  4. AMLODIPINE [Concomitant]
     Active Substance: AMLODIPINE BESYLATE
  5. BENADRYL [Concomitant]
     Active Substance: DIPHENHYDRAMINE HYDROCHLORIDE
  6. CARVEDILOL [Concomitant]
     Active Substance: CARVEDILOL
  7. CITALOPRAM [Concomitant]
     Active Substance: CITALOPRAM HYDROBROMIDE
  8. CYCLOBENZAPRINE [Concomitant]
     Active Substance: CYCLOBENZAPRINE
  9. DARZALEX [Concomitant]
     Active Substance: DARATUMUMAB
  10. DECADRON [Concomitant]
     Active Substance: DEXAMETHASONE
  11. ELIQUIS [Concomitant]
     Active Substance: APIXABAN
  12. EPINEPHRINE [Concomitant]
     Active Substance: EPINEPHRINE
  13. FUROSEMIDE [Concomitant]
     Active Substance: FUROSEMIDE
  14. HYDROMORPHONE [Concomitant]
     Active Substance: HYDROMORPHONE
  15. LISINOPRIL [Concomitant]
     Active Substance: LISINOPRIL
  16. VITAMINS [Concomitant]
     Active Substance: VITAMINS
  17. NOVOLOG [Concomitant]
     Active Substance: INSULIN ASPART
  18. PIOGLITAZONE [Concomitant]
     Active Substance: PIOGLITAZONE
  19. PRALUENT [Concomitant]
     Active Substance: ALIROCUMAB
  20. SINGULAIR [Concomitant]
     Active Substance: MONTELUKAST SODIUM
  21. SODIUM BICARBONATE [Concomitant]
     Active Substance: SODIUM BICARBONATE
  22. SOLU-MEDROL [Concomitant]
     Active Substance: METHYLPREDNISOLONE SODIUM SUCCINATE
  23. TRAMADOL [Concomitant]
     Active Substance: TRAMADOL
  24. TRESIBA [Concomitant]
     Active Substance: INSULIN DEGLUDEC
  25. TYLENOL [Concomitant]
     Active Substance: ACETAMINOPHEN
  26. UNIFINE [Concomitant]
  27. ZOFRAN [Concomitant]
     Active Substance: ONDANSETRON HYDROCHLORIDE

REACTIONS (1)
  - Haemoglobin decreased [None]
